FAERS Safety Report 7203930-0 (Version None)
Quarter: 2010Q4

REPORT INFORMATION
  Report Type: 
  Country: None (occurrence: None)
  Receive Date: 20101230
  Receipt Date: 20101210
  Transmission Date: 20110411
  Serious: No
  Sender: FDA-Public Use
  Company Number: US-PFIZER INC-2010172383

PATIENT
  Age: 29 Year
  Sex: Female
  Weight: 96.145 kg

DRUGS (1)
  1. LORATADINE AND PSEUDOEPHEDRINE SULFATE [Suspect]
     Dosage: T TABLET QD
     Route: 048
     Dates: start: 20101207

REACTIONS (1)
  - DRUG INEFFECTIVE [None]
